FAERS Safety Report 18393039 (Version 1)
Quarter: 2020Q4

REPORT INFORMATION
  Report Type: Spontaneous
  Country: US (occurrence: US)
  Receive Date: 20201016
  Receipt Date: 20201016
  Transmission Date: 20210114
  Serious: Yes (Other)
  Sender: FDA-Public Use
  Company Number: US-PFIZER INC-2020394803

PATIENT
  Age: 34 Year
  Sex: Female

DRUGS (2)
  1. DIAZEPAM. [Suspect]
     Active Substance: DIAZEPAM
     Indication: ANXIETY
     Dosage: 5 MG, 3X/DAY (AS NEEDED)
  2. DIAZEPAM. [Suspect]
     Active Substance: DIAZEPAM
     Dosage: UNK, DAILY (40 TO 60 MG)

REACTIONS (5)
  - Muscle spasms [Unknown]
  - Hyperhidrosis [Unknown]
  - Nausea [Unknown]
  - Withdrawal syndrome [Unknown]
  - Drug dependence [Unknown]
